FAERS Safety Report 19981226 (Version 2)
Quarter: 2021Q4

REPORT INFORMATION
  Report Type: Spontaneous
  Country: CA (occurrence: CA)
  Receive Date: 20211022
  Receipt Date: 20211117
  Transmission Date: 20220303
  Serious: Yes (Other)
  Sender: FDA-Public Use
  Company Number: CA-BOEHRINGERINGELHEIM-2021-BI-133128

PATIENT
  Sex: Male
  Weight: 104.78 kg

DRUGS (1)
  1. JARDIANCE [Suspect]
     Active Substance: EMPAGLIFLOZIN
     Indication: Type 2 diabetes mellitus
     Dosage: 10 MG/ONCE A DAY
     Route: 048
     Dates: start: 20181128, end: 20210710

REACTIONS (2)
  - Toe amputation [Recovered/Resolved]
  - Necrotising fasciitis [Unknown]

NARRATIVE: CASE EVENT DATE: 20210501
